FAERS Safety Report 21803471 (Version 4)
Quarter: 2023Q1

REPORT INFORMATION
  Report Type: Spontaneous
  Country: US (occurrence: US)
  Receive Date: 20230101
  Receipt Date: 20230119
  Transmission Date: 20230418
  Serious: No
  Sender: FDA-Public Use
  Company Number: US-AMGEN-USASP2022225807

PATIENT
  Age: 25 Year
  Sex: Female
  Weight: 61.224 kg

DRUGS (1)
  1. AIMOVIG [Suspect]
     Active Substance: ERENUMAB-AOOE
     Indication: Migraine prophylaxis
     Dosage: 70 MILLIGRAM, QMO (UNCCESSFUL ATTEMPT)
     Route: 065
     Dates: start: 20221228

REACTIONS (5)
  - Device difficult to use [Unknown]
  - Accidental exposure to product [Unknown]
  - Wrong technique in product usage process [Unknown]
  - Muscle spasms [Unknown]
  - Injection site pain [Unknown]

NARRATIVE: CASE EVENT DATE: 20221228
